FAERS Safety Report 8289629-0 (Version None)
Quarter: 2012Q2

REPORT INFORMATION
  Report Type: 
  Country: None (occurrence: None)
  Receive Date: 20120417
  Receipt Date: 20120406
  Transmission Date: 20120825
  Serious: Yes (Life-Threatening, Other)
  Sender: FDA-Public Use
  Company Number: FR-TEVA-328003ISR

PATIENT
  Sex: Female

DRUGS (5)
  1. SOLU-MEDROL [Concomitant]
     Indication: PREMEDICATION
  2. CARBOPLATIN [Suspect]
     Indication: OVARIAN CANCER
     Route: 042
     Dates: start: 20120308, end: 20120308
  3. POLARAMINE [Concomitant]
     Indication: PREMEDICATION
  4. GEMCITABINE [Concomitant]
     Indication: OVARIAN CANCER
  5. CARBOPLATIN [Suspect]
     Route: 042
     Dates: start: 20120329

REACTIONS (10)
  - OEDEMA [None]
  - VOMITING [None]
  - BLOOD PRESSURE DECREASED [None]
  - LOSS OF CONSCIOUSNESS [None]
  - OCULAR HYPERAEMIA [None]
  - DRUG HYPERSENSITIVITY [None]
  - DIARRHOEA [None]
  - NAUSEA [None]
  - HYPOTHERMIA [None]
  - TREMOR [None]
